FAERS Safety Report 16002647 (Version 6)
Quarter: 2019Q3

REPORT INFORMATION
  Report Type: Spontaneous
  Country: US (occurrence: US)
  Receive Date: 20190225
  Receipt Date: 20190919
  Transmission Date: 20191004
  Serious: No
  Sender: FDA-Public Use
  Company Number: US-SA-2019SA047073

PATIENT
  Age: 53 Year
  Sex: Female

DRUGS (3)
  1. DUPIXENT [Suspect]
     Active Substance: DUPILUMAB
     Indication: PRODUCT USED FOR UNKNOWN INDICATION
     Dosage: 600 MG, 1X
     Route: 058
     Dates: start: 201902
  2. DUPIXENT [Suspect]
     Active Substance: DUPILUMAB
     Dosage: 300 MG, QOW
     Route: 058
  3. DUPIXENT [Suspect]
     Active Substance: DUPILUMAB
     Dosage: 300 MG, PATIENT TAKE MEDICATION WHEN RECIEVED AND DID NOT KNOW THE MED IS TO BE TAKEN EVERY 2 WEEKS
     Route: 058

REACTIONS (7)
  - Musculoskeletal chest pain [Unknown]
  - Product use issue [Unknown]
  - Blister [Unknown]
  - Onychoclasis [Unknown]
  - Ocular hyperaemia [Unknown]
  - Skin discolouration [Unknown]
  - Product use issue [Unknown]

NARRATIVE: CASE EVENT DATE: 2019
